FAERS Safety Report 6236040-X (Version None)
Quarter: 2009Q2

REPORT INFORMATION
  Report Type: 
  Country: None (occurrence: None)
  Receive Date: 20090619
  Receipt Date: 20090610
  Transmission Date: 20091009
  Serious: Yes (Hospitalization)
  Sender: FDA-Public Use
  Company Number: US-BIOGENIDEC-2009BI013293

PATIENT
  Age: 39 Year
  Sex: Female

DRUGS (4)
  1. AVONEX [Suspect]
     Indication: MULTIPLE SCLEROSIS
     Route: 030
     Dates: start: 20090320, end: 20090501
  2. PROZAC [Concomitant]
     Indication: DRUG USE FOR UNKNOWN INDICATION
  3. DEPAKOTE [Concomitant]
     Indication: GRAND MAL CONVULSION
  4. KLONOPIN [Concomitant]
     Indication: GRAND MAL CONVULSION

REACTIONS (18)
  - ASTHMA [None]
  - BLOOD PRESSURE DECREASED [None]
  - CARDIAC ARREST [None]
  - COGNITIVE DISORDER [None]
  - DEPRESSION [None]
  - DYSPNOEA [None]
  - EMOTIONAL DISTRESS [None]
  - GRAND MAL CONVULSION [None]
  - LOSS OF CONSCIOUSNESS [None]
  - MEMORY IMPAIRMENT [None]
  - MIGRAINE [None]
  - PAIN [None]
  - PNEUMONIA ASPIRATION [None]
  - PROCEDURAL PAIN [None]
  - RESPIRATORY DISTRESS [None]
  - SPEECH DISORDER [None]
  - TENSION HEADACHE [None]
  - VISUAL IMPAIRMENT [None]
